FAERS Safety Report 16229361 (Version 2)
Quarter: 2019Q2

REPORT INFORMATION
  Report Type: Spontaneous
  Country: US (occurrence: US)
  Receive Date: 20190423
  Receipt Date: 20190503
  Transmission Date: 20190711
  Serious: Yes (Other)
  Sender: FDA-Public Use
  Company Number: US-ALLERGAN-1917261US

PATIENT
  Sex: Female

DRUGS (1)
  1. KYBELLA [Suspect]
     Active Substance: DEOXYCHOLIC ACID
     Indication: FAT TISSUE INCREASED
     Dosage: 2 VIALS, SINGLE
     Route: 030

REACTIONS (4)
  - Product administered at inappropriate site [Unknown]
  - Ageusia [Unknown]
  - Hypoaesthesia oral [Unknown]
  - Tissue injury [Unknown]
